FAERS Safety Report 7445458-9 (Version None)
Quarter: 2011Q2

REPORT INFORMATION
  Report Type: 
  Country: None (occurrence: None)
  Receive Date: 20110429
  Receipt Date: 20110425
  Transmission Date: 20111010
  Serious: Yes (Life-Threatening, Hospitalization, Other)
  Sender: FDA-Public Use
  Company Number: US-PFIZER INC-2010082473

PATIENT
  Sex: Male
  Weight: 25.9 kg

DRUGS (1)
  1. DILANTIN [Suspect]
     Indication: CONVULSION
     Dosage: UNK
     Dates: start: 19910605, end: 19910623

REACTIONS (17)
  - LETHARGY [None]
  - PNEUMONIA [None]
  - HYPONATRAEMIA [None]
  - CONJUNCTIVITIS [None]
  - STEVENS-JOHNSON SYNDROME [None]
  - COLLAPSE OF LUNG [None]
  - VISUAL FIELD DEFECT [None]
  - AGGRESSION [None]
  - STOMATITIS [None]
  - CELLULITIS [None]
  - GASTROOESOPHAGEAL REFLUX DISEASE [None]
  - DEHYDRATION [None]
  - NYSTAGMUS [None]
  - SYMBLEPHARON [None]
  - RESPIRATORY ARREST [None]
  - CORNEAL INFECTION [None]
  - NASOPHARYNGITIS [None]
